FAERS Safety Report 4322373-0 (Version None)
Quarter: 2004Q1

REPORT INFORMATION
  Report Type: 
  Country: None (occurrence: None)
  Receive Date: 20040319
  Receipt Date: 20040308
  Transmission Date: 20041129
  Serious: Yes (Hospitalization)
  Sender: FDA-Public Use
  Company Number: 2004EU000510

PATIENT
  Age: 5 Year
  Sex: Male

DRUGS (4)
  1. FK506 (TACROLIMUS) [Suspect]
     Indication: RENAL TRANSPLANT
     Dates: start: 20011201
  2. AZATHIOPRINE [Concomitant]
  3. PREDNISOLONE [Concomitant]
  4. BASILIXIMAB (BASILIXMAB) [Concomitant]

REACTIONS (2)
  - ANURIA [None]
  - URETERAL NECROSIS [None]
